FAERS Safety Report 17396964 (Version 1)
Quarter: 2020Q1

REPORT INFORMATION
  Report Type: Spontaneous
  Country: US (occurrence: US)
  Receive Date: 20200210
  Receipt Date: 20200210
  Transmission Date: 20200409
  Serious: No
  Sender: FDA-Public Use
  Company Number: US-VAYAPHARMA-2015-US-001905

PATIENT
  Age: 7 Year
  Sex: Female
  Weight: 18.14 kg

DRUGS (1)
  1. VAYARIN (NON-SPECIFIC) [Suspect]
     Active Substance: DOCONEXENT\ICOSAPENT\PHOSPHATIDYL SERINE
     Indication: ATTENTION DEFICIT/HYPERACTIVITY DISORDER
     Dosage: 2 CAPSULES 1X/DAY
     Route: 048

REACTIONS (4)
  - Pruritus [Unknown]
  - Rash papular [Recovered/Resolved]
  - Papule [Recovered/Resolved]
  - Erythema [Recovered/Resolved]

NARRATIVE: CASE EVENT DATE: 201508
